FAERS Safety Report 7753840-5 (Version None)
Quarter: 2011Q3

REPORT INFORMATION
  Report Type: 
  Country: None (occurrence: None)
  Receive Date: 20110915
  Receipt Date: 20110906
  Transmission Date: 20111222
  Serious: Yes (Hospitalization)
  Sender: FDA-Public Use
  Company Number: US-BAYER-2011-020897

PATIENT
  Age: 16 Year
  Sex: Female
  Weight: 42.177 kg

DRUGS (2)
  1. YASMIN [Suspect]
     Indication: PRODUCT USED FOR UNKNOWN INDICATION
     Dosage: UNK
     Dates: start: 20080401, end: 20090901
  2. DROSPIRENONE AND ETHINYL ESTRADIOL [Suspect]
     Indication: PRODUCT USED FOR UNKNOWN INDICATION
     Dosage: UNK
     Dates: start: 20080401, end: 20090901

REACTIONS (5)
  - GALLBLADDER INJURY [None]
  - CHOLECYSTITIS CHRONIC [None]
  - EMOTIONAL DISTRESS [None]
  - ANXIETY [None]
  - PAIN [None]
